FAERS Safety Report 16180828 (Version 1)
Quarter: 2019Q2

REPORT INFORMATION
  Report Type: Spontaneous
  Country: US (occurrence: US)
  Receive Date: 20190410
  Receipt Date: 20190410
  Transmission Date: 20190711
  Serious: No
  Sender: FDA-Public Use
  Company Number: US-BAYER-2019-068773

PATIENT
  Sex: Female

DRUGS (5)
  1. MILK OF MAGNESIA ORIGINAL [Suspect]
     Active Substance: MAGNESIUM HYDROXIDE
     Indication: GASTROINTESTINAL DISORDER
     Dosage: 3 DF TABLESPOON EVERYDAY
     Route: 048
  2. MINERAL OIL. [Concomitant]
     Active Substance: MINERAL OIL
  3. MYLANTA [Concomitant]
     Active Substance: ALUMINUM HYDROXIDE\DIMETHICONE\MAGNESIUM HYDROXIDE
  4. MIRALAX [Suspect]
     Active Substance: POLYETHYLENE GLYCOL 3350
  5. TUMS [CALCIUM CARBONATE;MAGNESIUM CARBONATE] [Concomitant]

REACTIONS (4)
  - Product use issue [Unknown]
  - Off label use [Unknown]
  - Product use in unapproved indication [Unknown]
  - Incorrect dose administered [Unknown]
